FAERS Safety Report 19891528 (Version 15)
Quarter: 2023Q2

REPORT INFORMATION
  Report Type: Report from Study
  Country: TH (occurrence: None)
  Receive Date: 20210928
  Receipt Date: 20230405
  Transmission Date: 20230722
  Serious: Yes (Life-Threatening, Hospitalization)
  Sender: FDA-Public Use
  Company Number: TH-ROCHE-2919592

PATIENT
  Age: 57 Year
  Sex: Male
  Weight: 46.6 kg

DRUGS (31)
  1. BEVACIZUMAB [Suspect]
     Active Substance: BEVACIZUMAB
     Indication: Cholangiocarcinoma
     Dosage: DATE OF MOST RECENT DOSE OF BEVACIZUMAB PRIOR TO SAE: 01/SEP/2021?DATE OF MOST RECENT DOSE OF BEVACI
     Route: 042
     Dates: start: 20210721
  2. ATEZOLIZUMAB [Suspect]
     Active Substance: ATEZOLIZUMAB
     Indication: Cholangiocarcinoma
     Dosage: DATE OF MOST RECENT DOSE OF ATEZOLIZUMAB (192 MG) PRIOR TO SAE: 22/SEP/2021 ?DATE OF MOST RECENT DOS
     Route: 041
     Dates: start: 20210721
  3. CISPLATIN [Suspect]
     Active Substance: CISPLATIN
     Indication: Cholangiocarcinoma
     Dosage: DATE OF MOST RECENT DOSE OF CISPLATIN (34.5 MG) PRIOR TO SAE: 08/SEP/2021?DATE OF MOST RECENT DOSE O
     Route: 042
     Dates: start: 20210721
  4. GEMCITABINE [Suspect]
     Active Substance: GEMCITABINE
     Indication: Cholangiocarcinoma
     Dosage: DATE OF MOST RECENT DOSE OF GEMCITABINE (1380 MG) PRIOR TO SAE: 08/SEP/2021?DATE OF MOST RECENT DOSE
     Route: 042
     Dates: start: 20210721
  5. SUCRALFATE [Concomitant]
     Active Substance: SUCRALFATE
     Indication: Oesophagitis
     Dates: start: 20210630
  6. SUCRALFATE [Concomitant]
     Active Substance: SUCRALFATE
     Indication: Gastritis
  7. SUCRALFATE [Concomitant]
     Active Substance: SUCRALFATE
     Indication: Duodenitis
  8. OMEPRAZOLE [Concomitant]
     Active Substance: OMEPRAZOLE
     Indication: Oesophagitis
     Dates: start: 20210630, end: 20211201
  9. OMEPRAZOLE [Concomitant]
     Active Substance: OMEPRAZOLE
     Indication: Gastritis
  10. OMEPRAZOLE [Concomitant]
     Active Substance: OMEPRAZOLE
     Indication: Duodenitis
  11. GABAPENTIN [Concomitant]
     Active Substance: GABAPENTIN
     Indication: Paraplegia
     Dates: start: 20210601
  12. MORPHINE [Concomitant]
     Active Substance: MORPHINE
     Indication: Back pain
     Dates: start: 20210614
  13. MORPHINE [Concomitant]
     Active Substance: MORPHINE
     Indication: Spinal cord compression
  14. MORPHINE SULFATE [Concomitant]
     Active Substance: MORPHINE SULFATE
     Indication: Back pain
     Dates: start: 20210614
  15. MORPHINE SULFATE [Concomitant]
     Active Substance: MORPHINE SULFATE
     Indication: Spinal cord compression
  16. SENOLAX [Concomitant]
     Indication: Constipation
     Dates: start: 20210601
  17. VITAMIN B COMPLEX [Concomitant]
     Active Substance: CYANOCOBALAMIN\DEXPANTHENOL\NIACINAMIDE\PYRIDOXINE HYDROCHLORIDE\RIBOFLAVIN 5^-PHOSPHATE SODIUM\THIA
     Indication: Paraplegia
     Dates: start: 20210614
  18. ATENOLOL [Concomitant]
     Active Substance: ATENOLOL
     Indication: Hypertension
     Dates: start: 20210922, end: 20210926
  19. PALONOSETRON [Concomitant]
     Active Substance: PALONOSETRON
     Dates: start: 20210721, end: 20211124
  20. DEXAMETHASONE [Concomitant]
     Active Substance: DEXAMETHASONE
     Route: 042
     Dates: start: 20210721, end: 20211110
  21. OLANZAPINE [Concomitant]
     Active Substance: OLANZAPINE
     Dates: start: 20211020, end: 20211023
  22. OLANZAPINE [Concomitant]
     Active Substance: OLANZAPINE
     Dates: start: 20210901, end: 20210904
  23. OLANZAPINE [Concomitant]
     Active Substance: OLANZAPINE
     Dates: start: 20210908, end: 20210911
  24. OLANZAPINE [Concomitant]
     Active Substance: OLANZAPINE
     Dates: start: 20210721, end: 20210724
  25. OLANZAPINE [Concomitant]
     Active Substance: OLANZAPINE
     Dates: start: 20210730, end: 20210802
  26. OLANZAPINE [Concomitant]
     Active Substance: OLANZAPINE
     Dates: start: 20210811, end: 20210814
  27. OLANZAPINE [Concomitant]
     Active Substance: OLANZAPINE
     Dates: start: 20210818, end: 20210821
  28. OLANZAPINE [Concomitant]
     Active Substance: OLANZAPINE
     Dates: start: 20211015, end: 20211018
  29. LASIX [Concomitant]
     Active Substance: FUROSEMIDE
     Dates: start: 20211103, end: 20211104
  30. CHLORPHENIRAMINE [Concomitant]
     Active Substance: CHLORPHENIRAMINE
     Dates: start: 20211124
  31. MAGNESIUM SULFATE [Concomitant]
     Active Substance: MAGNESIUM SULFATE
     Indication: Hypomagnesaemia
     Dates: start: 20210922, end: 20210922

REACTIONS (2)
  - Cardiac failure congestive [Recovered/Resolved with Sequelae]
  - Atrial fibrillation [Recovered/Resolved]

NARRATIVE: CASE EVENT DATE: 20210922
